FAERS Safety Report 22030938 (Version 2)
Quarter: 2023Q1

REPORT INFORMATION
  Report Type: Spontaneous
  Country: DE (occurrence: DE)
  Receive Date: 20230223
  Receipt Date: 20230309
  Transmission Date: 20230417
  Serious: Yes (Hospitalization)
  Sender: FDA-Public Use
  Company Number: DE-TEVA-2023-DE-2858465

PATIENT
  Age: 19 Year
  Sex: Male

DRUGS (11)
  1. MYCOPHENOLATE MOFETIL [Suspect]
     Active Substance: MYCOPHENOLATE MOFETIL
     Indication: Immunosuppressant drug therapy
     Dosage: 2 GRAM DAILY;
     Route: 065
  2. PREDNISOLONE [Suspect]
     Active Substance: PREDNISOLONE
     Indication: Immunosuppressant drug therapy
     Dosage: 82.2 MILLIGRAM DAILY;
     Route: 042
  3. PREDNISOLONE [Suspect]
     Active Substance: PREDNISOLONE
     Dosage: 5 MILLIGRAM DAILY;
     Route: 042
  4. CYCLOPHOSPHAMIDE [Suspect]
     Active Substance: CYCLOPHOSPHAMIDE
     Indication: Immunosuppressant drug therapy
     Dosage: 1*1000 MG
     Route: 042
  5. TOFACITINIB [Suspect]
     Active Substance: TOFACITINIB
     Indication: Immunosuppressant drug therapy
     Dosage: 10 MILLIGRAM DAILY;
     Route: 065
  6. METHYLPREDNISOLONE [Suspect]
     Active Substance: METHYLPREDNISOLONE
     Indication: Immunosuppressant drug therapy
     Dosage: UP TO 500 MG METHYLPREDNISOLONE PER DAY FOR 3 DAYS
     Route: 065
  7. IMMUNOGLOBULINS [Concomitant]
     Indication: Immunosuppressant drug therapy
     Dosage: 2 G/KG
     Route: 042
  8. RITUXIMAB [Concomitant]
     Active Substance: RITUXIMAB
     Indication: Immunosuppressant drug therapy
     Dosage: 2*1000 MG
     Route: 042
  9. CYCLOSPORINE [Concomitant]
     Active Substance: CYCLOSPORINE
     Indication: Immunosuppressant drug therapy
     Dosage: GRADUALLY INCREASE OF DOSAGE UP TO 500 MG/D
     Route: 065
  10. ANAKINRA [Concomitant]
     Active Substance: ANAKINRA
     Indication: Immunosuppressant drug therapy
     Dosage: 100 MILLIGRAM DAILY;
     Route: 058
  11. DARATUMUMAB [Concomitant]
     Active Substance: DARATUMUMAB
     Indication: Dermatomyositis
     Dosage: 257.1429 MILLIGRAM DAILY;
     Route: 058

REACTIONS (6)
  - Nausea [Recovered/Resolved]
  - Tracheitis [Recovered/Resolved]
  - Sepsis [Recovered/Resolved]
  - Liver injury [Unknown]
  - Bacterial tracheitis [Recovered/Resolved]
  - Drug ineffective [Unknown]
